FAERS Safety Report 9638346 (Version 1)
Quarter: 2013Q4

REPORT INFORMATION
  Report Type: Report from Study
  Country: RU (occurrence: RU)
  Receive Date: 20131022
  Receipt Date: 20131022
  Transmission Date: 20140711
  Serious: Yes (Other)
  Sender: FDA-Public Use
  Company Number: RU-US-EMD SERONO, INC.-7244221

PATIENT
  Age: 28 Year
  Sex: Female
  Weight: 60 kg

DRUGS (2)
  1. GONAL-F [Suspect]
     Indication: OVULATION INDUCTION
     Dosage: TOTALLY 150 IU PER CYCLE
  2. BUSERELIN [Suspect]
     Indication: OVULATION INDUCTION
     Dosage: TOTALLY 3.75 MG PER CYCLE

REACTIONS (1)
  - Foetal growth restriction [Unknown]
